FAERS Safety Report 19027520 (Version 1)
Quarter: 2021Q1

REPORT INFORMATION
  Report Type: Report from Study
  Country: US (occurrence: US)
  Receive Date: 20210319
  Receipt Date: 20210319
  Transmission Date: 20210420
  Serious: Yes (Other)
  Sender: FDA-Public Use
  Company Number: US-TAIHO ONCOLOGY  INC-EU-2021-00435

PATIENT
  Age: 61 Year
  Sex: Female
  Weight: 96.7 kg

DRUGS (27)
  1. MAGIC SWIZZLE [Concomitant]
     Dosage: SOLUTION
     Dates: start: 20190419
  2. PROCHLORPERAZINE MALEATE. [Concomitant]
     Active Substance: PROCHLORPERAZINE MALEATE
     Route: 048
     Dates: start: 20180411
  3. CHOLECALCIFEROL [Concomitant]
     Active Substance: CHOLECALCIFEROL
     Route: 048
  4. POTASSIUM CHLORIDE CRYS ER [Concomitant]
     Active Substance: POTASSIUM CHLORIDE
     Dosage: TABLET, CONTROLLED RELEASE
     Route: 048
     Dates: start: 20180508
  5. COVID?19 ADENOVIRUS VACCINE [Concomitant]
     Dosage: SUSPENSION
     Route: 030
     Dates: start: 202103
  6. CRESTOR [Concomitant]
     Active Substance: ROSUVASTATIN CALCIUM
     Route: 048
  7. POTASSIUM [Concomitant]
     Active Substance: POTASSIUM
     Route: 048
     Dates: start: 202101
  8. PRILOSEC [Concomitant]
     Active Substance: OMEPRAZOLE MAGNESIUM
     Dosage: CAPSULE DELAYED RELEASE
     Route: 048
  9. REGLAN [Concomitant]
     Active Substance: METOCLOPRAMIDE HYDROCHLORIDE
     Route: 048
  10. DEXAMETHASONE SODIUM PHOSPHATE. [Concomitant]
     Active Substance: DEXAMETHASONE SODIUM PHOSPHATE
     Dosage: SOLUTION? 10 MG/ML ? 4 MG, INTRAVENOUS ONCE INTERMITTENT OVER 20 MINUTES IN NS 50 ML (1)
     Route: 042
     Dates: start: 20180312, end: 20210224
  11. LONSURF [Suspect]
     Active Substance: TIPIRACIL HYDROCHLORIDE\TRIFLURIDINE
     Indication: COLON CANCER
     Dosage: CYCLE 1
     Route: 048
     Dates: start: 20210201, end: 20210218
  12. VITAMIN B12 [Concomitant]
     Active Substance: CYANOCOBALAMIN
     Route: 060
     Dates: start: 20180501
  13. ASPIRIN. [Concomitant]
     Active Substance: ASPIRIN
     Route: 048
     Dates: start: 202002
  14. PERCOCET [Concomitant]
     Active Substance: ACETAMINOPHEN\OXYCODONE HYDROCHLORIDE
     Dosage: 5?325 MG, TAKE 1 TABLET TID
     Route: 048
  15. DEXTROSE. [Concomitant]
     Active Substance: DEXTROSE
     Dosage: DEXTROSE 5% NS 0.9% (SOLUTION)? 1000 ML INTRAVENOUS DAILY INTERMITTENT OVER 2 HOURS FOR 1 DAY
     Route: 042
     Dates: start: 20210104, end: 20210219
  16. HEPARIN LOCK FLUSH [Concomitant]
     Active Substance: HEPARIN SODIUM
     Dosage: 100 UNITS/ML ? 5 ML, INTRAVENOUS ONCE PUSH
     Route: 042
     Dates: start: 20180314, end: 20210312
  17. B?6 [Concomitant]
     Route: 048
     Dates: start: 20180501
  18. METOPROLOL TARTRATE. [Concomitant]
     Active Substance: METOPROLOL TARTRATE
     Route: 048
     Dates: start: 202002
  19. HYDROCHLOROTHIAZIDE. [Concomitant]
     Active Substance: HYDROCHLOROTHIAZIDE
     Route: 048
     Dates: start: 20190410
  20. VITAMIN E [Concomitant]
     Active Substance: .ALPHA.-TOCOPHEROL
     Route: 048
  21. ZOFRAN [Concomitant]
     Active Substance: ONDANSETRON HYDROCHLORIDE
     Route: 048
     Dates: start: 20180307
  22. CELEBREX [Concomitant]
     Active Substance: CELECOXIB
     Route: 048
  23. GRANISETRON HCL [Concomitant]
     Active Substance: GRANISETRON HYDROCHLORIDE
     Dosage: SOLUTION? 1 MG/ML ? 1 MG INTRAVENOUS ONCE INTERMITTENT OVER 20 MINUTES IN NS 50 ML (1)
     Route: 042
     Dates: start: 20180312, end: 20210224
  24. PEMBROLIZUMAB. [Concomitant]
     Active Substance: PEMBROLIZUMAB
     Dosage: SOLUTION, WHEN RECONSTITUTED
     Dates: start: 20210219, end: 20210312
  25. FLUOXETINE HCL [Concomitant]
     Active Substance: FLUOXETINE HYDROCHLORIDE
     Route: 048
  26. FLUZONE [Concomitant]
     Active Substance: INFLUENZA A VIRUS A/CALIFORNIA/7/2009 X-179A (H1N1) ANTIGEN (FORMALDEHYDE INACTIVATED)\INFLUENZA A VIRUS A/VICTORIA/210/2009 X-187 (H3N2) ANTIGEN (FORMALDEHYDE INACTIVATED)\INFLUENZA B VIRUS B/BRISBANE/60/2008 ANTIGEN (FORMALDEHYDE INACTIVATED)
     Dosage: SUSPENSION
     Route: 030
     Dates: start: 202009
  27. EMLA [Concomitant]
     Active Substance: LIDOCAINE\PRILOCAINE
     Route: 061
     Dates: start: 20180307

REACTIONS (2)
  - Illness [Recovered/Resolved]
  - Nausea [Recovered/Resolved]

NARRATIVE: CASE EVENT DATE: 20210217
